FAERS Safety Report 7072071-8 (Version None)
Quarter: 2010Q4

REPORT INFORMATION
  Report Type: 
  Country: None (occurrence: None)
  Receive Date: 20101028
  Receipt Date: 20101028
  Transmission Date: 20110411
  Serious: No
  Sender: FDA-Public Use
  Company Number: None

PATIENT
  Age: 5 Month
  Sex: Female
  Weight: 7.7111 kg

DRUGS (1)
  1. HYLAND'S TEETHING TABLETS N/A HYLAND'S HOMEOPATHIC [Suspect]
     Indication: TEETHING
     Dosage: 2-3 TABLETS ONCE DAILY SL
     Route: 060

REACTIONS (3)
  - MIDDLE INSOMNIA [None]
  - SCREAMING [None]
  - SOMNOLENCE [None]
